FAERS Safety Report 17409425 (Version 2)
Quarter: 2020Q1

REPORT INFORMATION
  Report Type: Spontaneous
  Country: FR (occurrence: FR)
  Receive Date: 20200212
  Receipt Date: 20200221
  Transmission Date: 20200409
  Serious: Yes (Death, Hospitalization, Other)
  Sender: FDA-Public Use
  Company Number: FR-PFIZER INC-2020057655

PATIENT
  Age: 83 Year
  Sex: Female
  Weight: 62 kg

DRUGS (8)
  1. NOVATREX NOS [Suspect]
     Active Substance: AZITHROMYCIN OR METHOTREXATE SODIUM
     Indication: POLYARTHRITIS
     Dosage: 15 MG, WEEKLY
     Route: 048
     Dates: end: 20191217
  2. PREDNISONE. [Concomitant]
     Active Substance: PREDNISONE
     Indication: POLYARTHRITIS
     Dosage: 5 MG, 1X/DAY
     Route: 048
  3. FOLIC ACID. [Concomitant]
     Active Substance: FOLIC ACID
     Indication: VITAMIN SUPPLEMENTATION
     Dosage: 5 MG, 1X/DAY
     Route: 048
  4. FUROSEMIDE. [Concomitant]
     Active Substance: FUROSEMIDE
     Dosage: 20 MG, 1X/DAY
     Route: 048
  5. LERCANIDIPINE HCL [Concomitant]
     Active Substance: LERCANIDIPINE HYDROCHLORIDE
     Indication: HYPERTENSION
     Dosage: 20 MG, 1X/DAY
     Route: 048
  6. ESOMEPRAZOLE. [Concomitant]
     Active Substance: ESOMEPRAZOLE MAGNESIUM
     Indication: PROPHYLAXIS
     Dosage: 20 MG, 1X/DAY
     Route: 048
  7. AUGMENTIN [Interacting]
     Active Substance: AMOXICILLIN\CLAVULANATE POTASSIUM
     Indication: TONSILLITIS
     Dosage: UNK
     Route: 048
     Dates: start: 20191216, end: 20191218
  8. BISOPROLOL FUMARATE. [Concomitant]
     Active Substance: BISOPROLOL FUMARATE
     Dosage: 5 MG, 1X/DAY
     Route: 048

REACTIONS (6)
  - Respiratory failure [Fatal]
  - Colitis [Not Recovered/Not Resolved]
  - Hyperbilirubinaemia [Not Recovered/Not Resolved]
  - Drug interaction [Fatal]
  - Pancytopenia [Fatal]
  - Herpes virus infection [Recovering/Resolving]

NARRATIVE: CASE EVENT DATE: 201912
